FAERS Safety Report 5880163-1 (Version None)
Quarter: 2008Q3

REPORT INFORMATION
  Report Type: 
  Country: None (occurrence: None)
  Receive Date: 20080910
  Receipt Date: 20080910
  Transmission Date: 20090109
  Serious: No
  Sender: FDA-Public Use
  Company Number: None

PATIENT
  Age: 62 Year
  Sex: Female

DRUGS (2)
  1. ZOFRAN [Suspect]
     Indication: NAUSEA
     Dosage: 4 MG ONCE IV
     Route: 042
     Dates: start: 20080902, end: 20080902
  2. ZOFRAN [Suspect]
     Indication: NAUSEA
     Dosage: 4 MG ONCE IV
     Route: 042
     Dates: start: 20080903, end: 20080903

REACTIONS (7)
  - AMNESIA [None]
  - ATRIOVENTRICULAR BLOCK [None]
  - BRADYCARDIA [None]
  - HYPERHIDROSIS [None]
  - LOSS OF CONSCIOUSNESS [None]
  - TORSADE DE POINTES [None]
  - VENTRICULAR EXTRASYSTOLES [None]
